FAERS Safety Report 9248410 (Version 1)
Quarter: 2013Q1

REPORT INFORMATION
  Report Type: Spontaneous
  Country: US (occurrence: None)
  Receive Date: 20130305
  Receipt Date: 20130305
  Transmission Date: 20140127
  Serious: Yes (Other)
  Sender: FDA-Public Use
  Company Number: 163-21880-12092379

PATIENT
  Age: 54 Year
  Sex: Male
  Weight: 147.42 kg

DRUGS (12)
  1. REVLIMID (LENALIDOMIDE) (25 MILLIGRAM, CAPSULES) [Suspect]
     Indication: PLASMA CELL MYELOMA
     Route: 048
     Dates: start: 20120825
  2. ACYCLOVIR (ACICLOVIR) (ACICLOVIR) [Concomitant]
  3. AMLODIPINE (AMLODIPINE) [Concomitant]
  4. ASPIRIN (ACETYLSALICYLIC ACID) [Concomitant]
  5. CLONIDINE (CLONIDINE) [Concomitant]
  6. CRESTOR (ROSUVASTATIN) [Concomitant]
  7. DEXAMETHASONE (DEXAMETHASONE) [Concomitant]
  8. METFORMIN (METFORMIN) [Concomitant]
  9. METOPROLOL (METOPROLOL) [Concomitant]
  10. ONDANSETRON (ONDANSETRON) [Concomitant]
  11. PROCHLORPERAZINE (PROCHLORPERAZINE) [Concomitant]
  12. VITAMIN D3 (COLECALCIFEROL) [Concomitant]

REACTIONS (2)
  - Blood pressure increased [None]
  - Local swelling [None]
